FAERS Safety Report 5629879-2 (Version None)
Quarter: 2008Q1

REPORT INFORMATION
  Report Type: 
  Country: None (occurrence: None)
  Receive Date: 20080218
  Receipt Date: 20080208
  Transmission Date: 20080703
  Serious: Yes (Other)
  Sender: FDA-Public Use
  Company Number: PHNU2007DE03357

PATIENT
  Age: 33 Year
  Sex: Male

DRUGS (3)
  1. TRILEPTAL [Suspect]
     Indication: CONVULSION
  2. ORFIRIL - SLOW RELEASE [Concomitant]
     Indication: CONVULSION
  3. ERGENYL [Concomitant]
     Indication: CONVULSION

REACTIONS (4)
  - ACNE [None]
  - VISION BLURRED [None]
  - VISUAL ACUITY REDUCED [None]
  - WEIGHT INCREASED [None]
